FAERS Safety Report 24368124 (Version 2)
Quarter: 2024Q4

REPORT INFORMATION
  Report Type: Spontaneous
  Country: PK (occurrence: PK)
  Receive Date: 20240926
  Receipt Date: 20241120
  Transmission Date: 20250114
  Serious: Yes (Other)
  Sender: PFIZER
  Company Number: PK-PFIZER INC-PV202400036590

PATIENT
  Age: 59 Year
  Sex: Female
  Weight: 75 kg

DRUGS (2)
  1. TRAZIMERA [Suspect]
     Active Substance: TRASTUZUMAB-QYYP
     Indication: Breast cancer female
     Dosage: 440 MG, 3-WEEKLY
     Route: 042
     Dates: start: 202403
  2. TRAZIMERA [Suspect]
     Active Substance: TRASTUZUMAB-QYYP
     Dosage: 440 MG, 3-WEEKLY
     Route: 042

REACTIONS (2)
  - Weight increased [Unknown]
  - Off label use [Unknown]

NARRATIVE: CASE EVENT DATE: 20240301
